FAERS Safety Report 12359970 (Version 2)
Quarter: 2016Q2

REPORT INFORMATION
  Report Type: Spontaneous
  Country: ES (occurrence: ES)
  Receive Date: 20160512
  Receipt Date: 20160613
  Transmission Date: 20160815
  Serious: Yes (Hospitalization, Other)
  Sender: FDA-Public Use
  Company Number: ES-TEVA-658731ISR

PATIENT
  Age: 51 Year
  Sex: Female

DRUGS (6)
  1. CLOPIDOGREL [Suspect]
     Active Substance: CLOPIDOGREL BISULFATE
     Indication: ANTIPLATELET THERAPY
     Dates: start: 200610, end: 201111
  2. ATORVASTATIN [Concomitant]
     Active Substance: ATORVASTATIN
     Dates: start: 200610, end: 201111
  3. ACETYLSALICYLIC ACID [Suspect]
     Active Substance: ASPIRIN
     Indication: ANTIPLATELET THERAPY
     Dates: end: 201111
  4. ATORVASTATIN [Concomitant]
     Active Substance: ATORVASTATIN
  5. INSULIN [Concomitant]
     Active Substance: INSULIN NOS
     Dates: end: 201111
  6. NADROPARIN CALCIUM [Concomitant]
     Active Substance: NADROPARIN CALCIUM
     Route: 058

REACTIONS (5)
  - Dysarthria [Unknown]
  - Ischaemic stroke [Unknown]
  - Drug resistance [Unknown]
  - Hemiparesis [Unknown]
  - Dysphagia [Unknown]
